FAERS Safety Report 24644070 (Version 1)
Quarter: 2024Q4

REPORT INFORMATION
  Report Type: Spontaneous
  Country: CA (occurrence: CA)
  Receive Date: 20241120
  Receipt Date: 20241120
  Transmission Date: 20250115
  Serious: Yes (Life-Threatening, Hospitalization, Other)
  Sender: VERTEX
  Company Number: CA-VERTEX PHARMACEUTICALS-2024-017996

PATIENT
  Age: 21 Year
  Sex: Female

DRUGS (6)
  1. TRIKAFTA [Suspect]
     Active Substance: ELEXACAFTOR\IVACAFTOR\TEZACAFTOR
     Indication: Cystic fibrosis
     Dosage: 1 EVERY DAY
     Route: 048
  2. DORNAVAC [Concomitant]
  3. FLUTICASONE PROPIONATE AND SALMETEROL [Concomitant]
     Active Substance: FLUTICASONE PROPIONATE\SALMETEROL XINAFOATE
  4. HYDROXYZINE [Concomitant]
     Active Substance: HYDROXYZINE HYDROCHLORIDE
  5. QUETIAPINE [Concomitant]
     Active Substance: QUETIAPINE
  6. TOBRAMYCIN [Concomitant]
     Active Substance: TOBRAMYCIN\TOBRAMYCIN SULFATE

REACTIONS (5)
  - Suicidal ideation [Recovering/Resolving]
  - Intentional overdose [Recovering/Resolving]
  - Delusion [Recovering/Resolving]
  - Intentional self-injury [Recovering/Resolving]
  - Psychotic disorder [Recovering/Resolving]
